FAERS Safety Report 5314638-0 (Version None)
Quarter: 2007Q2

REPORT INFORMATION
  Report Type: 
  Country: None (occurrence: None)
  Receive Date: 20070426
  Receipt Date: 20070411
  Transmission Date: 20071010
  Serious: Yes (Hospitalization)
  Sender: FDA-Public Use
  Company Number: 2007317740

PATIENT
  Age: 58 Year
  Sex: Female
  Weight: 77.1 kg

DRUGS (3)
  1. BENADRYL [Suspect]
     Indication: RASH
     Dosage: ORAL
     Route: 048
     Dates: start: 20070406
  2. CHANTIX [Suspect]
     Indication: SMOKING CESSATION THERAPY
     Dates: start: 20070323, end: 20070401
  3. DRUG UNSPECIFIED (DRUG, UNSPECIFIED) [Concomitant]

REACTIONS (10)
  - BLOOD PRESSURE INCREASED [None]
  - CARDIAC FLUTTER [None]
  - CHEST PAIN [None]
  - DRUG INEFFECTIVE [None]
  - HEART RATE INCREASED [None]
  - HYPOTENSION [None]
  - NERVOUSNESS [None]
  - PAIN [None]
  - RASH PRURITIC [None]
  - TREMOR [None]
